FAERS Safety Report 7689647-7 (Version None)
Quarter: 2011Q3

REPORT INFORMATION
  Report Type: 
  Country: None (occurrence: None)
  Receive Date: 20110817
  Receipt Date: 20110812
  Transmission Date: 20111222
  Serious: Yes (Hospitalization)
  Sender: FDA-Public Use
  Company Number: US-ROCHE-794101

PATIENT
  Sex: Male
  Weight: 130 kg

DRUGS (4)
  1. RIBAVIRIN [Suspect]
     Route: 048
  2. TELAPREVIR [Suspect]
     Route: 048
     Dates: start: 20110602
  3. RIBAVIRIN [Suspect]
     Dosage: DOSE : 400 MG AM / 600 MG PM
     Route: 048
     Dates: start: 20110602
  4. PEGINTERFERON ALFA-2A [Suspect]
     Route: 065
     Dates: start: 20110602

REACTIONS (2)
  - SYNCOPE [None]
  - ANAEMIA [None]
